FAERS Safety Report 17767689 (Version 2)
Quarter: 2020Q4

REPORT INFORMATION
  Report Type: Report from Study
  Country: BR (occurrence: BR)
  Receive Date: 20200511
  Receipt Date: 20201008
  Transmission Date: 20210113
  Serious: Yes (Other)
  Sender: FDA-Public Use
  Company Number: NVSC2020BR034832

PATIENT
  Age: 69 Year
  Sex: Female

DRUGS (3)
  1. COSENTYX [Suspect]
     Active Substance: SECUKINUMAB
     Dosage: 300 MG, UNKNOWN
     Route: 065
     Dates: start: 20200922
  2. COSENTYX [Suspect]
     Active Substance: SECUKINUMAB
     Dosage: 300 MG, UNKNOWN
     Route: 065
     Dates: start: 20200407
  3. COSENTYX [Suspect]
     Active Substance: SECUKINUMAB
     Indication: PSORIASIS
     Dosage: 300 MG, UNKNOWN
     Route: 065
     Dates: start: 20200110

REACTIONS (17)
  - Nervousness [Recovered/Resolved]
  - Skin exfoliation [Recovering/Resolving]
  - Skin haemorrhage [Recovering/Resolving]
  - Pruritus [Recovering/Resolving]
  - Expired product administered [Unknown]
  - Memory impairment [Not Recovered/Not Resolved]
  - Tension [Recovering/Resolving]
  - Scratch [Recovering/Resolving]
  - Diabetes mellitus [Unknown]
  - Skin abrasion [Recovered/Resolved]
  - Scab [Recovering/Resolving]
  - Therapeutic product effect incomplete [Unknown]
  - Psoriasis [Recovering/Resolving]
  - Fear [Recovering/Resolving]
  - Skin discolouration [Recovering/Resolving]
  - Dementia Alzheimer^s type [Unknown]
  - Anxiety [Recovering/Resolving]

NARRATIVE: CASE EVENT DATE: 20200906
